FAERS Safety Report 12213725 (Version 5)
Quarter: 2016Q2

REPORT INFORMATION
  Report Type: Spontaneous
  Country: JP (occurrence: JP)
  Receive Date: 20160328
  Receipt Date: 20160426
  Transmission Date: 20160815
  Serious: Yes (Hospitalization, Other)
  Sender: FDA-Public Use
  Company Number: JP-GLAXOSMITHKLINE-JP2016JPN040387

PATIENT
  Age: 67 Year
  Sex: Male
  Weight: 60 kg

DRUGS (1)
  1. RELENZA [Suspect]
     Active Substance: ZANAMIVIR
     Indication: INFLUENZA
     Dosage: 10 MG, BID
     Route: 055
     Dates: start: 20160319, end: 20160321

REACTIONS (12)
  - Abnormal behaviour [Recovering/Resolving]
  - Delusion [Unknown]
  - Cerebral disorder [Not Recovered/Not Resolved]
  - Nerve injury [Not Recovered/Not Resolved]
  - Delirium febrile [Unknown]
  - Coma [Recovering/Resolving]
  - Brain contusion [Unknown]
  - Depressed level of consciousness [Recovering/Resolving]
  - Blindness unilateral [Unknown]
  - Injury [Recovering/Resolving]
  - Memory impairment [Not Recovered/Not Resolved]
  - Visual impairment [Unknown]

NARRATIVE: CASE EVENT DATE: 20160321
